FAERS Safety Report 16939400 (Version 3)
Quarter: 2019Q4

REPORT INFORMATION
  Report Type: Report from Study
  Country: IE (occurrence: IE)
  Receive Date: 20191021
  Receipt Date: 20191220
  Transmission Date: 20200122
  Serious: Yes (Other)
  Sender: FDA-Public Use
  Company Number: IE-TEVA-2019-IE-1124506

PATIENT
  Age: 49 Year
  Sex: Female
  Weight: 55.2 kg

DRUGS (2)
  1. CISPLATIN. [Suspect]
     Active Substance: CISPLATIN
     Indication: SQUAMOUS CELL CARCINOMA OF HEAD AND NECK
     Dosage: AT 120MG
     Route: 042
     Dates: start: 20180619, end: 20190731
  2. FOSAPREPITANT [Suspect]
     Active Substance: FOSAPREPITANT
     Indication: VOMITING
     Dosage: AT 150MG
     Route: 042
     Dates: start: 20180731, end: 20180731

REACTIONS (1)
  - Hepatotoxicity [Recovered/Resolved]

NARRATIVE: CASE EVENT DATE: 20180801
